FAERS Safety Report 18441738 (Version 1)
Quarter: 2020Q4

REPORT INFORMATION
  Report Type: Spontaneous
  Country: US (occurrence: US)
  Receive Date: 20201029
  Receipt Date: 20201029
  Transmission Date: 20210114
  Serious: No
  Sender: FDA-Public Use
  Company Number: US-TEVA-2020-US-1842649

PATIENT

DRUGS (23)
  1. LIPITOR [Suspect]
     Active Substance: ATORVASTATIN CALCIUM
     Dosage: 20 MILLIGRAM DAILY; 1 TABLET AT DINNER
     Route: 065
  2. BUDESONIDE. [Suspect]
     Active Substance: BUDESONIDE
     Dosage: 0.5MG/2ML: 1 INHALATION IN MORNING
     Route: 055
  3. MIRALAX [Suspect]
     Active Substance: POLYETHYLENE GLYCOL 3350
     Dosage: 1 CAPFUL AT LUNCH
     Route: 065
  4. SENOKOT [Suspect]
     Active Substance: SENNOSIDES
     Dosage: 1 TABLET AT BEDTIME
     Route: 065
  5. ARANESP [Suspect]
     Active Substance: DARBEPOETIN ALFA
     Dosage: 400 MCG: 1 TIME PER WEEK-DURING DIALYSIS
     Route: 065
  6. LEVOXYL [Suspect]
     Active Substance: LEVOTHYROXINE SODIUM
     Dosage: 137 MILLIGRAM DAILY;
     Route: 065
  7. AREDS 2 [Suspect]
     Active Substance: MINERALS\VITAMINS
     Dosage: 2 GEL CAPS AT BREAKFAST
     Route: 065
  8. YUPELRI [Suspect]
     Active Substance: REVEFENACIN
     Dosage: 175 MCG/3ML: 1 INHALATION IN AFTERNOON
     Route: 055
  9. OMEPRAZOLE. [Suspect]
     Active Substance: OMEPRAZOLE
     Dosage: 40 MILLIGRAM DAILY; 1 TABLET BEFORE BREAKFAST
     Route: 065
  10. TRAMADOL HCL [Suspect]
     Active Substance: TRAMADOL HYDROCHLORIDE
     Dosage: 50 MILLIGRAM DAILY; 1 TABLET PER DAY AS NEEDED
     Route: 065
  11. VELPHORO [Suspect]
     Active Substance: SUCROFERRIC OXYHYDROXIDE
     Dosage: 500 MILLIGRAM DAILY; 1 TABLET WITH MEALS
     Route: 065
  12. RENA-VITE RX [Suspect]
     Active Substance: ASCORBIC ACID\BIOTIN\CALCIUM PANTOTHENATE\CYANOCOBALAMIN\FOLIC ACID\NIACINAMIDE\PYRIDOXINE HYDROCHLORIDE\RIBOFLAVIN\THIAMINE MONONITRATE
     Dosage: 1 TABLET AT LUNCH
  13. NOVOLOG [Suspect]
     Active Substance: INSULIN ASPART
     Dosage: 100 UNITS/ML: 8 UNITS AT BREAKFAST/10 UNITS AT LUNCH AND DINNER
     Route: 065
  14. VIDAFUEL [Suspect]
     Active Substance: DIETARY SUPPLEMENT
     Dosage: 3 OZ AT BREAKFAST
     Route: 065
  15. ZYRTEC [Suspect]
     Active Substance: CETIRIZINE HYDROCHLORIDE
     Dosage: 10 MILLIGRAM DAILY; 1 TABLET AT BREAKFAST
     Route: 065
  16. LANTUS SOLOSTAR [Suspect]
     Active Substance: INSULIN GLARGINE
     Dosage: 100 UNITS/ML: 12 UNITS NIGHTLY-BEFORE BED
     Route: 065
  17. FOLIC ACID. [Suspect]
     Active Substance: FOLIC ACID
     Dosage: 1 TABLET AT BREAKFAST
     Route: 065
  18. MIRTAZAPINE. [Suspect]
     Active Substance: MIRTAZAPINE
     Dosage: 15 MILLIGRAM DAILY; 1 TABLET AT BEDTIME
     Route: 065
  19. VITAMIN B COMPLEX [Suspect]
     Active Substance: CYANOCOBALAMIN\DEXPANTHENOL\NIACINAMIDE\PYRIDOXINE HYDROCHLORIDE\RIBOFLAVIN 5^-PHOSPHATE SODIUM\THIAMINE HYDROCHLORIDE\VITAMIN B COMPLEX
     Dosage: 1 TABLET AT BREAKFAST
     Route: 065
  20. LYRICA [Suspect]
     Active Substance: PREGABALIN
     Indication: DIABETIC NEUROPATHY
     Dosage: 20 MILLIGRAM DAILY;
     Route: 065
     Dates: start: 20200919, end: 20200927
  21. ALIGN [Suspect]
     Active Substance: BIFIDOBACTERIUM LONGUM SUBSP. INFANTIS
     Dosage: 1 TABLET AT LUNCH
     Route: 065
  22. XANAX [Suspect]
     Active Substance: ALPRAZOLAM
     Dosage: 1 TABLET UP TO 4 TIMES PER DAY AS NEEDED
     Route: 065
  23. VENOFER [Suspect]
     Active Substance: IRON SUCROSE
     Dosage: 100MG/5 ML:1 TIME PER WEEK-DURING DIALYSIS
     Route: 065

REACTIONS (3)
  - Unevaluable event [Recovered/Resolved]
  - Dysarthria [Recovered/Resolved]
  - Asthenia [Recovered/Resolved]

NARRATIVE: CASE EVENT DATE: 20200923
